FAERS Safety Report 7277097-7 (Version None)
Quarter: 2011Q1

REPORT INFORMATION
  Report Type: 
  Country: None (occurrence: None)
  Receive Date: 20110202
  Receipt Date: 20110202
  Transmission Date: 20110831
  Serious: Yes (Other)
  Sender: FDA-Public Use
  Company Number: None

PATIENT
  Sex: Female
  Weight: 62.5964 kg

DRUGS (1)
  1. BONIVA [Suspect]
     Indication: OSTEOPOROSIS
     Dosage: 1 TABLET 1 A MONTH
     Dates: start: 20110109

REACTIONS (5)
  - DIARRHOEA [None]
  - ARTHRALGIA [None]
  - ABASIA [None]
  - BACK PAIN [None]
  - NECK PAIN [None]
